APPROVED DRUG PRODUCT: MIDAZOLAM HYDROCHLORIDE PRESERVATIVE FREE
Active Ingredient: MIDAZOLAM HYDROCHLORIDE
Strength: EQ 5MG BASE/ML
Dosage Form/Route: INJECTABLE;INJECTION
Application: A090315 | Product #002 | TE Code: AP
Applicant: ONESOURCE SPECIALTY PTE LTD
Approved: Nov 29, 2010 | RLD: No | RS: No | Type: RX